FAERS Safety Report 14629580 (Version 1)
Quarter: 2018Q1

REPORT INFORMATION
  Report Type: Spontaneous
  Country: US (occurrence: US)
  Receive Date: 20180312
  Receipt Date: 20180312
  Transmission Date: 20180509
  Serious: Yes (Death)
  Sender: FDA-Public Use
  Company Number: None

PATIENT
  Sex: Female

DRUGS (8)
  1. DEXAMETHASONE. [Concomitant]
     Active Substance: DEXAMETHASONE
  2. PANTOPRAZOLE [Concomitant]
     Active Substance: PANTOPRAZOLE
  3. LIPITO [Concomitant]
  4. LASIX [Concomitant]
     Active Substance: FUROSEMIDE
  5. PANTOPRAZOLE [Suspect]
     Active Substance: PANTOPRAZOLE
  6. APIXABAN [Concomitant]
     Active Substance: APIXABAN
  7. LASIX [Suspect]
     Active Substance: FUROSEMIDE
  8. COMPAZINE [Concomitant]
     Active Substance: PROCHLORPERAZINE MALEATE

REACTIONS (1)
  - Death [None]
